FAERS Safety Report 6931637-3 (Version None)
Quarter: 2010Q3

REPORT INFORMATION
  Report Type: 
  Country: None (occurrence: None)
  Receive Date: 20100812
  Receipt Date: 20090622
  Transmission Date: 20110219
  Serious: No
  Sender: FDA-Public Use
  Company Number: 2009-00152

PATIENT
  Age: 35 Year
  Sex: Female
  Weight: 104.3273 kg

DRUGS (3)
  1. ZICAM ALLERGY RELIEF GEL SWABS [Suspect]
     Dosage: BID X 5 DAYS
     Dates: start: 20090505, end: 20090510
  2. ZITHROMAX [Concomitant]
  3. OSCILLOCOCCINUM [Concomitant]

REACTIONS (1)
  - ANOSMIA [None]
